FAERS Safety Report 13020129 (Version 1)
Quarter: 2016Q4

REPORT INFORMATION
  Report Type: Report from Study
  Country: US (occurrence: US)
  Receive Date: 20161212
  Receipt Date: 20161212
  Transmission Date: 20170207
  Serious: Yes (Hospitalization)
  Sender: FDA-Public Use
  Company Number: US-BRISTOL-MYERS SQUIBB COMPANY-BMS-2016-104395

PATIENT
  Age: 39 Year
  Sex: Female
  Weight: 75.7 kg

DRUGS (4)
  1. MIRENA [Concomitant]
     Active Substance: LEVONORGESTREL
     Indication: ENDOMETRIOSIS
     Route: 065
  2. BLINDED ABATACEPT [Suspect]
     Active Substance: ABATACEPT
     Indication: ENDOMETRIOSIS
     Dosage: 125 MG/ML, QWK
     Route: 058
     Dates: start: 20160421
  3. BLINDED PLACEBO [Suspect]
     Active Substance: INVESTIGATIONAL PRODUCT
     Indication: ENDOMETRIOSIS
     Dosage: 125 MG/ML, QWK
     Route: 058
     Dates: start: 20160421
  4. MIRENA [Concomitant]
     Active Substance: LEVONORGESTREL
     Indication: CONTRACEPTION
     Route: 065

REACTIONS (1)
  - Adrenal mass [Recovered/Resolved]

NARRATIVE: CASE EVENT DATE: 20161021
